FAERS Safety Report 7987658-5 (Version None)
Quarter: 2011Q4

REPORT INFORMATION
  Report Type: 
  Country: None (occurrence: None)
  Receive Date: 20111216
  Receipt Date: 20111212
  Transmission Date: 20120403
  Serious: Yes (Death)
  Sender: FDA-Public Use
  Company Number: US-TEVA-257882USA

PATIENT
  Sex: Female

DRUGS (9)
  1. COPAXONE [Suspect]
     Indication: MULTIPLE SCLEROSIS
     Route: 058
     Dates: start: 20100527
  2. PROMETHAZINE [Concomitant]
  3. VITAMIN D [Concomitant]
  4. DICLOFENAC SODIUM [Concomitant]
  5. PROPRANOLOL [Concomitant]
  6. DEPLIN [Concomitant]
  7. VITAMIN B12 NOS [Concomitant]
  8. SUMATRIPTAN [Concomitant]
  9. CLONAZEPAM [Concomitant]

REACTIONS (1)
  - DEATH [None]
